FAERS Safety Report 22878847 (Version 2)
Quarter: 2023Q4

REPORT INFORMATION
  Report Type: Spontaneous
  Country: US (occurrence: US)
  Receive Date: 20230829
  Receipt Date: 20231011
  Transmission Date: 20240110
  Serious: No
  Sender: FDA-Public Use
  Company Number: US-JNJFOC-20230837622

PATIENT
  Age: 72 Year
  Sex: Male

DRUGS (1)
  1. TYLENOL 8 HR ARTHRITIS PAIN [Suspect]
     Active Substance: ACETAMINOPHEN
     Indication: Arthritis
     Route: 065
     Dates: start: 20230815

REACTIONS (3)
  - Adverse event [Recovered/Resolved]
  - Incorrect dose administered [Unknown]
  - Product commingling [Unknown]

NARRATIVE: CASE EVENT DATE: 20230815
